FAERS Safety Report 8537189-9 (Version None)
Quarter: 2012Q3

REPORT INFORMATION
  Report Type: 
  Country: None (occurrence: None)
  Receive Date: 20120725
  Receipt Date: 20120716
  Transmission Date: 20120928
  Serious: Yes (Hospitalization, Other)
  Sender: FDA-Public Use
  Company Number: US-ACTELION-A-US2012-64277

PATIENT

DRUGS (3)
  1. CALCIUM CHANNEL BLOCKERS [Concomitant]
  2. TRACLEER [Suspect]
     Indication: PULMONARY ARTERIAL HYPERTENSION
     Dosage: UNK
     Route: 048
     Dates: start: 20100609
  3. COUMADIN [Concomitant]

REACTIONS (5)
  - INFECTED SKIN ULCER [None]
  - SKIN ULCER [None]
  - LEG AMPUTATION [None]
  - RHEUMATOID ARTHRITIS [None]
  - PERIPHERAL VASCULAR DISORDER [None]
